FAERS Safety Report 8107069 (Version 3)
Quarter: 2013Q4

REPORT INFORMATION
  Report Type: Spontaneous
  Country: US (occurrence: US)
  Receive Date: 20110825
  Receipt Date: 20131126
  Transmission Date: 20140711
  Serious: Yes (Hospitalization, Other)
  Sender: FDA-Public Use
  Company Number: US-BAYER-2011-074992

PATIENT
  Age: 36 Year
  Sex: Female
  Weight: 61.22 kg

DRUGS (15)
  1. YAZ [Suspect]
     Indication: PREMENSTRUAL DYSPHORIC DISORDER
     Dosage: UNK
     Dates: start: 2000
  2. YAZ [Suspect]
     Indication: PREMENSTRUAL SYNDROME
  3. YASMIN [Suspect]
  4. QVAR [Concomitant]
     Dosage: UNK
     Dates: start: 2002
  5. ALBUTEROL [Concomitant]
     Dosage: UNK UNK, PRN
     Dates: start: 2002
  6. SPRINTEC [Concomitant]
  7. OXYCODONE/APAP [Concomitant]
     Indication: PAIN
     Dosage: 5-325 MG TAKE 1 TO 2 EVERY 4 HOURS AN NEEDED
     Route: 048
  8. ONDANSETRON [Concomitant]
     Indication: NAUSEA
     Dosage: 8 MG DISSOLVE 1 TABLET EVERY 8 HOURS AS NEEDED
     Route: 048
  9. ONDANSETRON [Concomitant]
     Indication: VOMITING
  10. LORAZEPAM [Concomitant]
     Indication: ANXIETY
     Dosage: 0.5 MG TAKE 1 TABLET 3 TIMES A DAY WHEN NEEDED
     Route: 048
  11. ACYCLOVIR [ACICLOVIR] [Concomitant]
     Dosage: 400 MG TAKE 1 TABLET 3 TIMES A DAY FOR 7 DAYS
     Route: 048
  12. EPIPEN [Concomitant]
     Indication: ANAPHYLACTIC REACTION
     Dosage: 0.3MG/0.3ML INJECT AS NEEDED
  13. TEMAZEPAM [Concomitant]
     Indication: ANXIETY
     Dosage: 15 MG TAKE 1 CAPSULE AT BEDTIME AS NEEDED
     Route: 048
  14. SULINDAC [Concomitant]
     Dosage: 200 MG TAKE 1 TABLET 2 TIMES DAILY WITH FOOD
     Route: 048
  15. BETAMETHASONE DIPROPIONATE [Concomitant]
     Dosage: 0.05 %, UNK
     Route: 061

REACTIONS (4)
  - Gallbladder injury [None]
  - Cholecystitis acute [None]
  - Injury [None]
  - Pain [None]
